FAERS Safety Report 15225913 (Version 2)
Quarter: 2019Q2

REPORT INFORMATION
  Report Type: Spontaneous
  Country: GB (occurrence: GB)
  Receive Date: 20180801
  Receipt Date: 20190628
  Transmission Date: 20190711
  Serious: Yes (Other)
  Sender: FDA-Public Use
  Company Number: GB-AUROBINDO-AUR-APL-2018-039257

PATIENT

DRUGS (11)
  1. RITONAVIR. [Suspect]
     Active Substance: RITONAVIR
     Dosage: DALIY
     Route: 048
     Dates: start: 2013, end: 2013
  2. RALTEGRAVIR POTASSIUM [Suspect]
     Active Substance: RALTEGRAVIR POTASSIUM
     Indication: PRODUCT USED FOR UNKNOWN INDICATION
     Dosage: 800 DAILY
     Route: 048
     Dates: start: 2013
  3. LAMIVUDINE AND ZIDOVUDINE [Suspect]
     Active Substance: LAMIVUDINE\ZIDOVUDINE
     Indication: PRODUCT USED FOR UNKNOWN INDICATION
     Dosage: 1 DAILY
     Route: 048
  4. NEVIRAPINE. [Suspect]
     Active Substance: NEVIRAPINE
     Indication: PRODUCT USED FOR UNKNOWN INDICATION
     Dosage: 400 DAILY
     Route: 048
  5. DARUNAVIR [Suspect]
     Active Substance: DARUNAVIR
     Indication: PRODUCT USED FOR UNKNOWN INDICATION
     Dosage: 1200 DAILY
     Route: 048
     Dates: start: 2013
  6. RITONAVIR. [Suspect]
     Active Substance: RITONAVIR
     Indication: PRODUCT USED FOR UNKNOWN INDICATION
     Dosage: 200 UNK, DAILY/DOSAGE FORM: UNSPECIFIED, TOTAL DAILY DOSE: 100 (UNITS NOT REPORTED)
     Route: 048
     Dates: start: 2013
  7. RITONAVIR. [Suspect]
     Active Substance: RITONAVIR
     Dosage: 100 DAILY
     Route: 048
     Dates: start: 2013
  8. NEVIRAPINE. [Suspect]
     Active Substance: NEVIRAPINE
     Dosage: DOSAGE FORM: UNSPECIFIED, TOTAL DAILY DOSE: 400 (UNITS NOT PROVIDED)
     Route: 048
  9. DARUNAVIR [Suspect]
     Active Substance: DARUNAVIR
     Dosage: 800 DAILY
     Route: 048
     Dates: start: 2013
  10. DARUNAVIR [Suspect]
     Active Substance: DARUNAVIR
     Dosage: UNK, ONCE A DAY
     Route: 048
     Dates: start: 2013, end: 2013
  11. EMTRICITABINE;TENOFOVIR DISOPROXIL FUMARATE [Suspect]
     Active Substance: EMTRICITABINE\TENOFOVIR DISOPROXIL FUMARATE
     Indication: PRODUCT USED FOR UNKNOWN INDICATION
     Dosage: 1 DOSAGE FORM, ONCE A DAY
     Route: 048
     Dates: start: 2013

REACTIONS (2)
  - Premature delivery [Recovered/Resolved]
  - Maternal exposure during pregnancy [Recovered/Resolved]

NARRATIVE: CASE EVENT DATE: 20140105
